FAERS Safety Report 7718947-7 (Version None)
Quarter: 2011Q3

REPORT INFORMATION
  Report Type: 
  Country: None (occurrence: None)
  Receive Date: 20110830
  Receipt Date: 20110117
  Transmission Date: 20111222
  Serious: Yes (Hospitalization)
  Sender: FDA-Public Use
  Company Number: US-GLAXOSMITHKLINE-A0908111A

PATIENT
  Age: 56 Year
  Sex: Male

DRUGS (1)
  1. AVANDIA [Suspect]
     Indication: DIABETES MELLITUS
     Route: 048
     Dates: start: 20000101

REACTIONS (5)
  - CEREBROVASCULAR ACCIDENT [None]
  - LIVER INJURY [None]
  - RENAL INJURY [None]
  - SCHIZOPHRENIA [None]
  - CARDIAC DISORDER [None]
